FAERS Safety Report 11260336 (Version 1)
Quarter: 2015Q3

REPORT INFORMATION
  Report Type: Spontaneous
  Country: BR (occurrence: BR)
  Receive Date: 20150710
  Receipt Date: 20150710
  Transmission Date: 20151125
  Serious: Yes (Other)
  Sender: FDA-Public Use
  Company Number: BR-SA-2015SA098527

PATIENT
  Age: 57 Year
  Sex: Female
  Weight: 62.4 kg

DRUGS (3)
  1. OXALIPLATIN. [Suspect]
     Active Substance: OXALIPLATIN
     Route: 065
  2. CAMPTOSAR [Suspect]
     Active Substance: IRINOTECAN HYDROCHLORIDE
     Indication: COLON CANCER
     Route: 042
  3. FOLINIC ACID [Concomitant]
     Active Substance: LEUCOVORIN

REACTIONS (6)
  - Nausea [Unknown]
  - Pain in jaw [Unknown]
  - Toxicity to various agents [Unknown]
  - Speech disorder [Unknown]
  - Flushing [Unknown]
  - Tongue oedema [Unknown]

NARRATIVE: CASE EVENT DATE: 20150119
